FAERS Safety Report 6141544-4 (Version None)
Quarter: 2009Q1

REPORT INFORMATION
  Report Type: 
  Country: None (occurrence: None)
  Receive Date: 20090331
  Receipt Date: 20090323
  Transmission Date: 20090719
  Serious: Yes (Other)
  Sender: FDA-Public Use
  Company Number: 230078J08CAN

PATIENT
  Sex: Female

DRUGS (10)
  1. REBIF [Suspect]
     Indication: RELAPSING-REMITTING MULTIPLE SCLEROSIS
     Dosage: 44 MCG, 3 IN 1 WEEKS
     Dates: start: 20040730
  2. IBUPROFEN [Concomitant]
  3. CITALOPRAM HYDROBROMIDE [Concomitant]
  4. AMITRIPTYLINE HCL [Concomitant]
  5. ARTHROTIC [Concomitant]
  6. BACLOFEN [Concomitant]
  7. RISPERIDONE [Concomitant]
  8. CLONAZEPAM [Concomitant]
  9. NAPROXEN [Concomitant]
  10. TYLENOL (COTYLENOL) [Concomitant]

REACTIONS (10)
  - AMNESIA [None]
  - DYSARTHRIA [None]
  - HEADACHE [None]
  - HYPOAESTHESIA [None]
  - INJECTION SITE ERYTHEMA [None]
  - INJECTION SITE INDURATION [None]
  - INJECTION SITE REACTION [None]
  - MIGRAINE [None]
  - PANIC ATTACK [None]
  - URINARY TRACT INFECTION [None]
